FAERS Safety Report 5165473-8 (Version None)
Quarter: 2006Q4

REPORT INFORMATION
  Report Type: 
  Country: None (occurrence: None)
  Receive Date: 20061206
  Receipt Date: 20061127
  Transmission Date: 20070319
  Serious: Yes (Other)
  Sender: FDA-Public Use
  Company Number: PHFR2006GB03488

PATIENT
  Age: 57 Year
  Sex: Male
  Weight: 99.8 kg

DRUGS (3)
  1. SUNITINIB MALATE [Suspect]
     Indication: METASTATIC RENAL CELL CARCINOMA
     Dosage: 50MG / DAY
     Route: 048
     Dates: start: 20060329
  2. LANSOPRAZOLE [Concomitant]
     Indication: DYSPEPSIA
     Dosage: 30MG / DAY
     Route: 048
     Dates: start: 20060726
  3. ZOMETA [Suspect]
     Indication: METASTASES TO BONE
     Dosage: 4MG
     Route: 042
     Dates: start: 20060920, end: 20060920

REACTIONS (1)
  - OSTEONECROSIS [None]
